FAERS Safety Report 4489853-9 (Version None)
Quarter: 2004Q4

REPORT INFORMATION
  Report Type: 
  Country: None (occurrence: None)
  Receive Date: 20041101
  Receipt Date: 20041027
  Transmission Date: 20050328
  Serious: Yes (Death, Life-Threatening, Hospitalization, Disabling)
  Sender: FDA-Public Use
  Company Number: US-MERCK-0410USA04027

PATIENT
  Age: 72 Year
  Sex: Male

DRUGS (4)
  1. VIOXX [Suspect]
     Indication: ARTHRITIS
     Route: 048
     Dates: start: 20020101, end: 20021231
  2. ACTONEL [Concomitant]
     Route: 065
  3. PRAVACHOL [Concomitant]
     Route: 065
  4. OXYBUTYNIN [Concomitant]
     Route: 065

REACTIONS (1)
  - MYOCARDIAL INFARCTION [None]
